FAERS Safety Report 26121355 (Version 2)
Quarter: 2025Q4

REPORT INFORMATION
  Report Type: Report from Study
  Country: BR (occurrence: BR)
  Receive Date: 20251204
  Receipt Date: 20251212
  Transmission Date: 20260118
  Serious: Yes (Other)
  Sender: NOVARTIS
  Company Number: BR-002147023-NVSC2025BR151524

PATIENT
  Age: 56 Year
  Sex: Female

DRUGS (9)
  1. KISQALI [Suspect]
     Active Substance: RIBOCICLIB SUCCINATE
     Indication: Breast cancer metastatic
     Dosage: UNK
     Route: 065
     Dates: start: 202505
  2. KISQALI [Suspect]
     Active Substance: RIBOCICLIB SUCCINATE
     Indication: Breast cancer
     Dosage: UNK (START DATE: 16 SEP) (21 DAYS AND WAITS 7)
     Route: 065
  3. KISQALI [Suspect]
     Active Substance: RIBOCICLIB SUCCINATE
     Indication: Metastases to liver
     Dosage: UNK, OTHER (TWO TABLETS) ON TUESDAY THE 14TH
     Route: 065
  4. KISQALI [Suspect]
     Active Substance: RIBOCICLIB SUCCINATE
     Indication: Invasive breast carcinoma
     Dosage: 3 DOSAGE FORM, QD (63 COATED TABLETS)
     Route: 048
  5. KISQALI [Suspect]
     Active Substance: RIBOCICLIB SUCCINATE
     Indication: Hepatic mass
     Dosage: 2 DOSAGE FORM, QD
     Route: 048
  6. FASLODEX [Concomitant]
     Active Substance: FULVESTRANT
     Indication: Breast cancer
     Dosage: 1 DOSAGE FORM, QMO (LIQUID, 1 APPLICATION A MONTH)
     Route: 030
  7. FASLODEX [Concomitant]
     Active Substance: FULVESTRANT
     Indication: Metastases to liver
  8. FASLODEX [Concomitant]
     Active Substance: FULVESTRANT
     Indication: Invasive breast carcinoma
  9. FASLODEX [Concomitant]
     Active Substance: FULVESTRANT
     Indication: Hepatic mass

REACTIONS (15)
  - Neutrophil count decreased [Recovered/Resolved]
  - Decreased immune responsiveness [Recovered/Resolved]
  - Leukopenia [Recovering/Resolving]
  - Decreased immune responsiveness [Recovered/Resolved]
  - Eosinophilia [Recovering/Resolving]
  - Lymphocytosis [Recovered/Resolved]
  - Mean cell haemoglobin increased [Not Recovered/Not Resolved]
  - Red blood cell count decreased [Recovering/Resolving]
  - Haematocrit decreased [Recovering/Resolving]
  - Band neutrophil count decreased [Not Recovered/Not Resolved]
  - Mean cell volume increased [Unknown]
  - Basophil count increased [Recovering/Resolving]
  - Blood creatinine increased [Unknown]
  - Glomerular filtration rate decreased [Unknown]
  - Blood alkaline phosphatase increased [Unknown]

NARRATIVE: CASE EVENT DATE: 20250605
